FAERS Safety Report 5402770-2 (Version None)
Quarter: 2007Q3

REPORT INFORMATION
  Report Type: 
  Country: None (occurrence: None)
  Receive Date: 20070730
  Receipt Date: 20070717
  Transmission Date: 20080115
  Serious: Yes (Hospitalization)
  Sender: FDA-Public Use
  Company Number: 2007AL002818

PATIENT
  Age: 41 Year
  Sex: Male

DRUGS (1)
  1. PHENOBARBITAL ELIXIR USP (ALPHARMA) (PHENOBARBITAL ELIXIR USP (ALPHARM [Suspect]
     Indication: EPILEPSY
     Dosage: 100 MG;QD; PO
     Route: 048

REACTIONS (5)
  - ALANINE AMINOTRANSFERASE INCREASED [None]
  - DYSURIA [None]
  - GAMMA-GLUTAMYLTRANSFERASE INCREASED [None]
  - PROTEIN TOTAL DECREASED [None]
  - TOXIC EPIDERMAL NECROLYSIS [None]
